FAERS Safety Report 20662932 (Version 1)
Quarter: 2022Q1

REPORT INFORMATION
  Report Type: Spontaneous
  Country: US (occurrence: None)
  Receive Date: 20220331
  Receipt Date: 20220331
  Transmission Date: 20220424
  Serious: Yes (Death)
  Sender: FDA-Public Use
  Company Number: None

PATIENT
  Age: 67 Year
  Sex: Female
  Weight: 30.84 kg

DRUGS (18)
  1. PROCRIT [Suspect]
     Active Substance: ERYTHROPOIETIN
     Indication: Breast cancer female
     Dosage: OTHER STRENGTH : 20000 UNITS/ML;?OTHER QUANTITY : 20000 UNITS ;?FREQUENCY : EVERY OTHER WEEK;?
     Route: 048
  2. Albuterol Sulfate lnhalation [Concomitant]
  3. ASPIRIN [Concomitant]
     Active Substance: ASPIRIN
  4. contour [Concomitant]
  5. COREG [Concomitant]
     Active Substance: CARVEDILOL
  6. ENTRESTO [Concomitant]
     Active Substance: SACUBITRIL\VALSARTAN
  7. FEMARA [Concomitant]
     Active Substance: LETROZOLE
  8. FLUOCINONIDE [Concomitant]
     Active Substance: FLUOCINONIDE
  9. HYDRALAZINE [Concomitant]
     Active Substance: HYDRALAZINE HYDROCHLORIDE
  10. LASIX [Concomitant]
     Active Substance: FUROSEMIDE
  11. microlet lancets [Concomitant]
  12. NORCO [Concomitant]
     Active Substance: ACETAMINOPHEN\HYDROCODONE BITARTRATE
  13. novolin r injection [Concomitant]
  14. PANTOPRAZOLE SODIUM [Concomitant]
     Active Substance: PANTOPRAZOLE SODIUM
  15. PEN NEEDLES [Concomitant]
  16. SPIRONOLACTONE [Concomitant]
     Active Substance: SPIRONOLACTONE
  17. TAMOXIFEN CITRATE [Concomitant]
     Active Substance: TAMOXIFEN CITRATE
  18. TYLENOL WITH CODEINE [Concomitant]
     Active Substance: ACETAMINOPHEN\CODEINE PHOSPHATE

REACTIONS (1)
  - Death [None]
